FAERS Safety Report 8588647 (Version 3)
Quarter: 2014Q2

REPORT INFORMATION
  Report Type: Spontaneous
  Country: US (occurrence: US)
  Receive Date: 20120531
  Receipt Date: 20140404
  Transmission Date: 20141212
  Serious: Yes (Other)
  Sender: FDA-Public Use
  Company Number: US-ASTRAZENECA-2012SE32290

PATIENT
  Age: 73 Year
  Sex: Female
  Weight: 64 kg

DRUGS (8)
  1. NEXIUM [Suspect]
     Indication: BARRETT^S OESOPHAGUS
     Route: 048
     Dates: start: 2002, end: 20140201
  2. NABUMETONE [Concomitant]
     Indication: ARTHRITIS
     Route: 048
     Dates: start: 2012
  3. LETROZOLE [Concomitant]
     Indication: BREAST CANCER FEMALE
     Route: 048
     Dates: start: 2011
  4. LEVOTHYROXINE [Concomitant]
     Indication: THYROID DISORDER
     Dosage: 100 MCG ON DAY AND 75 MCG THE NEXT DAY.
     Route: 048
     Dates: start: 1995
  5. LOSARTAN [Concomitant]
     Indication: BLOOD PRESSURE ABNORMAL
     Route: 048
     Dates: start: 2010
  6. VITAMIN D [Concomitant]
     Indication: SUPPLEMENTATION THERAPY
     Route: 048
     Dates: start: 2009
  7. CALCIUM WITH D [Concomitant]
     Indication: SUPPLEMENTATION THERAPY
     Route: 048
     Dates: start: 2009
  8. SUPER B COMPLEX [Concomitant]
     Indication: SUPPLEMENTATION THERAPY
     Route: 048
     Dates: start: 2009

REACTIONS (8)
  - Breast cancer female [Unknown]
  - Musculoskeletal disorder [Unknown]
  - Dyspepsia [Unknown]
  - Body height decreased [Unknown]
  - Intentional product misuse [Unknown]
  - Drug dose omission [Unknown]
  - Off label use [Unknown]
  - Off label use [Unknown]
